FAERS Safety Report 8472847-6 (Version None)
Quarter: 2012Q2

REPORT INFORMATION
  Report Type: 
  Country: None (occurrence: None)
  Receive Date: 20120627
  Receipt Date: 20120621
  Transmission Date: 20120825
  Serious: No
  Sender: FDA-Public Use
  Company Number: US-PFIZER INC-2012149899

PATIENT
  Sex: Female
  Weight: 119 kg

DRUGS (1)
  1. POTASSIUM PENICILLIN G [Suspect]
     Indication: ARTHRITIS
     Dosage: UNK, ONCE DAILY
     Route: 048

REACTIONS (1)
  - DRUG HYPERSENSITIVITY [None]
